FAERS Safety Report 16174628 (Version 1)
Quarter: 2019Q2

REPORT INFORMATION
  Report Type: Spontaneous
  Country: DE (occurrence: DE)
  Receive Date: 20190409
  Receipt Date: 20190409
  Transmission Date: 20190711
  Serious: Yes (Other)
  Sender: FDA-Public Use
  Company Number: DE-AMGEN-DEUSP2019052163

PATIENT
  Sex: Female
  Weight: 85 kg

DRUGS (14)
  1. XGEVA [Suspect]
     Active Substance: DENOSUMAB
     Indication: METASTASES TO BONE
     Route: 065
  2. O2 [OXYGEN] [Concomitant]
     Indication: ADVERSE EVENT
     Dosage: UNK
     Dates: start: 20180118
  3. TOREM [TORASEMIDE] [Concomitant]
     Active Substance: TORSEMIDE
     Indication: ADVERSE EVENT
     Dosage: 5 MILLIGRAM
     Dates: start: 20180619
  4. ZOMETA [Concomitant]
     Active Substance: ZOLEDRONIC ACID
     Indication: ADVERSE EVENT
     Dosage: UNK
     Dates: start: 20190219
  5. LAPATINIB [Concomitant]
     Active Substance: LAPATINIB
     Dosage: 1250 MILLIGRAM/SQ. METER
     Dates: start: 20180125
  6. PALLADON [Concomitant]
     Active Substance: HYDROMORPHONE
     Indication: PROPHYLAXIS
     Dosage: 1.3 MILLIGRAM
     Dates: start: 20180213
  7. NOVAMINE [Concomitant]
     Active Substance: ALANINE\ARGININE\ASPARTIC ACID\GLUTAMIC ACID\GLYCINE\HISTIDINE\ISOLEUCINE\LEUCINE\LYSINE ACETATE\METHIONINE\PHENYLALANINE\PROLINE\SERINE\THREONINE\TRYPTOPHAN\TYROSINE\VALINE
     Dosage: 500 MILLIGRAM
     Dates: start: 20171227
  8. DOCETAXEL. [Concomitant]
     Active Substance: DOCETAXEL
     Dosage: 75 MILLIGRAM/SQ. METER
     Dates: start: 20180123, end: 20190312
  9. L-THYROXINE [LEVOTHYROXINE] [Concomitant]
     Dosage: 25 MICROGRAM
     Dates: start: 20180710
  10. PANTOPRAZOLE [Concomitant]
     Active Substance: PANTOPRAZOLE
     Dosage: 20 MILLIGRAM
     Dates: start: 20180213
  11. LIXIANA [Concomitant]
     Active Substance: EDOXABAN TOSYLATE
     Indication: ADVERSE EVENT
     Dosage: 60 MILLIGRAM
     Dates: start: 20180724
  12. HCT [Concomitant]
     Active Substance: HYDROCHLOROTHIAZIDE
     Indication: PROPHYLAXIS
     Dosage: 12.5 MILLIGRAM
     Dates: start: 20180731
  13. IBUPROFEN. [Concomitant]
     Active Substance: IBUPROFEN
     Dosage: 600 MILLIGRAM
     Dates: start: 20171227
  14. NIFEDIPIN [Concomitant]
     Active Substance: NIFEDIPINE
     Indication: PROPHYLAXIS
     Dosage: 10 MILLIGRAM
     Dates: start: 20180119

REACTIONS (1)
  - Embolism [Not Recovered/Not Resolved]

NARRATIVE: CASE EVENT DATE: 20180717
